FAERS Safety Report 9218095 (Version 1)
Quarter: 2013Q2

REPORT INFORMATION
  Report Type: Spontaneous
  Country: GB (occurrence: GB)
  Receive Date: 20130408
  Receipt Date: 20130408
  Transmission Date: 20140414
  Serious: Yes (Other)
  Sender: FDA-Public Use
  Company Number: GB-VIIV HEALTHCARE LIMITED-B0879771A

PATIENT
  Sex: Female

DRUGS (4)
  1. KIVEXA [Suspect]
     Indication: HIV INFECTION
     Dosage: 1IUAX PER DAY
     Route: 048
     Dates: start: 20121029, end: 20130304
  2. MEFLOQUINE [Concomitant]
  3. ATAZANAVIR [Concomitant]
  4. RITONAVIR [Concomitant]
     Indication: MALARIA PROPHYLAXIS

REACTIONS (5)
  - Drug hypersensitivity [Recovered/Resolved]
  - Paraesthesia [Not Recovered/Not Resolved]
  - Hypoaesthesia [Not Recovered/Not Resolved]
  - Dizziness [Not Recovered/Not Resolved]
  - Nausea [Not Recovered/Not Resolved]
